FAERS Safety Report 22623320 (Version 8)
Quarter: 2025Q2

REPORT INFORMATION
  Report Type: Spontaneous
  Country: US (occurrence: US)
  Receive Date: 20230621
  Receipt Date: 20250512
  Transmission Date: 20250717
  Serious: Yes (Other)
  Sender: GLAXOSMITHKLINE
  Company Number: US-GSKCCFUS-Case-01724757_AE-97195

PATIENT
  Sex: Female

DRUGS (6)
  1. FLOVENT [Suspect]
     Active Substance: FLUTICASONE PROPIONATE
     Indication: Product used for unknown indication
  2. FLOVENT [Suspect]
     Active Substance: FLUTICASONE PROPIONATE
     Indication: Product used for unknown indication
     Dosage: 2 PUFF(S), BID 220MCG 1X120D
  3. FLOVENT [Suspect]
     Active Substance: FLUTICASONE PROPIONATE
  4. FLOVENT [Suspect]
     Active Substance: FLUTICASONE PROPIONATE
     Indication: Product used for unknown indication
  5. FLOVENT [Suspect]
     Active Substance: FLUTICASONE PROPIONATE
  6. FLOVENT [Suspect]
     Active Substance: FLUTICASONE PROPIONATE

REACTIONS (9)
  - Oesophageal candidiasis [Unknown]
  - Dyspnoea [Unknown]
  - Oral candidiasis [Unknown]
  - Dysphonia [Not Recovered/Not Resolved]
  - Palpitations [Unknown]
  - Wrong technique in product usage process [Unknown]
  - Product storage error [Unknown]
  - Incorrect dose administered [Unknown]
  - Product complaint [Unknown]
